FAERS Safety Report 14249881 (Version 1)
Quarter: 2017Q4

REPORT INFORMATION
  Report Type: Spontaneous
  Country: US (occurrence: US)
  Receive Date: 20171204
  Receipt Date: 20171204
  Transmission Date: 20180321
  Serious: No
  Sender: FDA-Public Use
  Company Number: None

PATIENT
  Sex: Female

DRUGS (2)
  1. METHOTREXATE. [Suspect]
     Active Substance: METHOTREXATE
     Indication: ECTOPIC PREGNANCY
     Dosage: ?          OTHER FREQUENCY:ONCE;?
     Route: 030
     Dates: start: 20170908, end: 20170920
  2. METHOTREXATE. [Suspect]
     Active Substance: METHOTREXATE
     Indication: ECTOPIC PREGNANCY
     Dosage: ?          OTHER FREQUENCY:ONCE;?
     Route: 030
     Dates: start: 20170912

REACTIONS (2)
  - Human chorionic gonadotropin abnormal [None]
  - Drug ineffective [None]

NARRATIVE: CASE EVENT DATE: 20170913
